FAERS Safety Report 6108119-4 (Version None)
Quarter: 2009Q1

REPORT INFORMATION
  Report Type: 
  Country: None (occurrence: None)
  Receive Date: 20090305
  Receipt Date: 20090305
  Transmission Date: 20090719
  Serious: Yes (Hospitalization)
  Sender: FDA-Public Use
  Company Number: None

PATIENT
  Age: 60 Year
  Sex: Female
  Weight: 63.5036 kg

DRUGS (3)
  1. OXALIPLATIN [Suspect]
     Indication: COLORECTAL CANCER
     Dosage: 55 MG/M2 Q 14 DAYS (D1 + 15)
  2. CAPECITABINE [Suspect]
     Dosage: 500MG/M2 DAYS 1 TO 28 BIC
  3. BEVACIZUMAB [Suspect]
     Indication: COLORECTAL CANCER
     Dosage: 5MG/KG Q14 DAYS (D1+15)

REACTIONS (3)
  - BILIARY DILATATION [None]
  - PANCREATITIS [None]
  - THERAPEUTIC AGENT TOXICITY [None]
